FAERS Safety Report 8157141-5 (Version None)
Quarter: 2012Q1

REPORT INFORMATION
  Report Type: 
  Country: None (occurrence: None)
  Receive Date: 20120222
  Receipt Date: 20120217
  Transmission Date: 20120608
  Serious: Yes (Life-Threatening, Hospitalization, Other)
  Sender: FDA-Public Use
  Company Number: US-BAYER-2011-093691

PATIENT
  Age: 36 Year
  Sex: Female
  Weight: 80.726 kg

DRUGS (8)
  1. ULTRACARB [Concomitant]
     Indication: WEIGHT DECREASED
  2. YASMIN [Suspect]
     Indication: CONTRACEPTION
     Dosage: UNK
     Route: 048
     Dates: start: 20020124, end: 20020401
  3. IMMUNITY ENHANCER [Concomitant]
  4. DROSPIRENONE AND ETHINYL ESTRADIOL [Suspect]
  5. MULTI-VITAMIN [Concomitant]
  6. YAZ [Suspect]
  7. AMOXICILLIN [Concomitant]
     Dosage: UNK
     Dates: start: 20020221
  8. CALCIUM [Concomitant]
     Dosage: 100 MG, QD

REACTIONS (11)
  - ANXIETY [None]
  - PARAESTHESIA [None]
  - DEEP VEIN THROMBOSIS [None]
  - SKIN DISCOLOURATION [None]
  - HEADACHE [None]
  - INJURY [None]
  - GENERAL PHYSICAL HEALTH DETERIORATION [None]
  - OEDEMA PERIPHERAL [None]
  - ANHEDONIA [None]
  - PAIN IN EXTREMITY [None]
  - PELVIC VENOUS THROMBOSIS [None]
